FAERS Safety Report 8477577-2 (Version None)
Quarter: 2012Q2

REPORT INFORMATION
  Report Type: 
  Country: None (occurrence: None)
  Receive Date: 20120629
  Receipt Date: 20120620
  Transmission Date: 20120825
  Serious: Yes (Hospitalization)
  Sender: FDA-Public Use
  Company Number: FR-SANOFI-AVENTIS-2012SA044005

PATIENT
  Age: 79 Year
  Sex: Male

DRUGS (2)
  1. PLAVIX [Suspect]
     Dosage: 5 DAYS PER WEEK
     Route: 048
     Dates: end: 20120123
  2. PENTOXIFYLLINE [Suspect]
     Route: 048

REACTIONS (4)
  - ANAEMIA [None]
  - OFF LABEL USE [None]
  - PROTHROMBIN TIME SHORTENED [None]
  - SUBDURAL HAEMATOMA [None]
